FAERS Safety Report 5867835-X (Version None)
Quarter: 2008Q3

REPORT INFORMATION
  Report Type: 
  Country: None (occurrence: None)
  Receive Date: 20080902
  Receipt Date: 20080605
  Transmission Date: 20090109
  Serious: No
  Sender: FDA-Public Use
  Company Number: US-ABBOTT-08P-163-0456663-00

PATIENT
  Age: 28 Year
  Sex: Female
  Weight: 44.492 kg

DRUGS (6)
  1. DEPAKOTE ER [Suspect]
     Indication: EPILEPSY
     Route: 048
  2. DEPAKOTE ER [Suspect]
     Dates: start: 20080414
  3. TOPIRAMATE [Suspect]
     Indication: EPILEPSY
     Route: 048
  4. CALCIUM [Concomitant]
     Indication: MINERAL SUPPLEMENTATION
     Route: 048
  5. FOLIC ACID [Concomitant]
     Indication: VITAMIN SUPPLEMENTATION
  6. TOPIRAMATE [Concomitant]
     Route: 048

REACTIONS (4)
  - DISTURBANCE IN ATTENTION [None]
  - MIGRAINE [None]
  - SOMNOLENCE [None]
  - VOMITING [None]
